FAERS Safety Report 14459620 (Version 1)
Quarter: 2018Q1

REPORT INFORMATION
  Report Type: Spontaneous
  Country: US (occurrence: US)
  Receive Date: 20180129
  Receipt Date: 20180129
  Transmission Date: 20180509
  Serious: No
  Sender: FDA-Public Use
  Company Number: None

PATIENT
  Age: 49 Year
  Sex: Male
  Weight: 87.75 kg

DRUGS (17)
  1. VITAMIN E [Concomitant]
     Active Substance: .ALPHA.-TOCOPHEROL
  2. METHYL B-12 [Concomitant]
  3. SEAWEED [Concomitant]
  4. Q10 [Concomitant]
  5. GILENYA [Suspect]
     Active Substance: FINGOLIMOD HYDROCHLORIDE
     Indication: MULTIPLE SCLEROSIS
     Dosage: ?          QUANTITY:1 CAPSULE(S);?
     Route: 048
     Dates: start: 20131015, end: 20180111
  6. ALPHA LIPOIC ACID [Concomitant]
     Active Substance: .ALPHA.-LIPOIC ACID
  7. OMEGA 3 [Concomitant]
     Active Substance: OMEGA-3 FATTY ACIDS
  8. VITAMIN B (B-100 COMPLEX) [Concomitant]
  9. GILENYA [Concomitant]
     Active Substance: FINGOLIMOD HYDROCHLORIDE
  10. TUMERIC [Concomitant]
     Active Substance: HERBALS\TURMERIC
  11. PROBIOTICS [Concomitant]
     Active Substance: PROBIOTICS NOS
  12. VITAMIN D [Concomitant]
     Active Substance: CHOLECALCIFEROL
  13. MAGNESIUM [Concomitant]
     Active Substance: MAGNESIUM
  14. N-ACETYL CYSTEINE (NAC) [Concomitant]
  15. CALCIUM [Concomitant]
     Active Substance: CALCIUM
  16. ZINC. [Concomitant]
     Active Substance: ZINC
  17. PHOSPHATIDYLSERINE (P-100) [Concomitant]

REACTIONS (2)
  - Uveitis [None]
  - Macular oedema [None]

NARRATIVE: CASE EVENT DATE: 20171218
